FAERS Safety Report 7674648-5 (Version None)
Quarter: 2011Q3

REPORT INFORMATION
  Report Type: 
  Country: None (occurrence: None)
  Receive Date: 20110810
  Receipt Date: 20110801
  Transmission Date: 20111222
  Serious: Yes (Other)
  Sender: FDA-Public Use
  Company Number: FR-ROCHE-790393

PATIENT
  Sex: Male
  Weight: 77 kg

DRUGS (3)
  1. PACLITAXEL [Concomitant]
  2. CARBOPLATIN [Concomitant]
  3. AVASTIN [Suspect]
     Route: 065
     Dates: start: 20110708, end: 20110708

REACTIONS (2)
  - EXTRAVASATION [None]
  - NO ADVERSE EVENT [None]
